FAERS Safety Report 6546208-0 (Version None)
Quarter: 2010Q1

REPORT INFORMATION
  Report Type: 
  Country: None (occurrence: None)
  Receive Date: 20100122
  Receipt Date: 20100115
  Transmission Date: 20100710
  Serious: Yes (Death, Other)
  Sender: FDA-Public Use
  Company Number: US-WYE-H03872108

PATIENT
  Sex: Female

DRUGS (3)
  1. PREMARIN [Suspect]
  2. ESTRATEST [Suspect]
  3. ESTRACE [Suspect]

REACTIONS (2)
  - BREAST CANCER [None]
  - RENAL CANCER [None]
